FAERS Safety Report 20519354 (Version 3)
Quarter: 2022Q2

REPORT INFORMATION
  Report Type: Spontaneous
  Country: JP (occurrence: JP)
  Receive Date: 20220225
  Receipt Date: 20220519
  Transmission Date: 20220721
  Serious: No
  Sender: FDA-Public Use
  Company Number: JP-GLAXOSMITHKLINE-JP2022JPN031829

PATIENT

DRUGS (16)
  1. SOTROVIMAB [Suspect]
     Active Substance: SOTROVIMAB
     Indication: COVID-19
     Dosage: 500 MG/DAY
     Dates: start: 20220218, end: 20220218
  2. PREDNISOLONE [Suspect]
     Active Substance: PREDNISOLONE
     Dosage: 2 DF, QD, IMMEDIATELY AFTER DINNER
     Dates: start: 20211026
  3. IMURAN [Suspect]
     Active Substance: AZATHIOPRINE
     Indication: Systemic lupus erythematosus
     Dosage: 50 MG, QD, IMMEDIATELY AFTER BREAKFAST
     Dates: start: 20211026
  4. IMURAN [Suspect]
     Active Substance: AZATHIOPRINE
     Indication: Lupus nephritis
  5. METOCLOPRAMIDE [Suspect]
     Active Substance: METOCLOPRAMIDE
     Indication: Nausea
     Dosage: 5 MG, WHEN NECESSARY
     Dates: start: 20220121, end: 202201
  6. METOCLOPRAMIDE [Suspect]
     Active Substance: METOCLOPRAMIDE
     Indication: Vomiting
  7. PLAQUENIL [Suspect]
     Active Substance: HYDROXYCHLOROQUINE SULFATE
     Indication: Systemic lupus erythematosus
     Dosage: 200 MG, QD, IMMEDIATELY AFTER BREAKFAST
     Dates: start: 20211026
  8. NEXIUM [Suspect]
     Active Substance: ESOMEPRAZOLE MAGNESIUM
     Indication: Prophylaxis against gastrointestinal ulcer
     Dosage: 20 MG, QD, IMMEDIATELY AFTER BREAKFAST
     Dates: start: 20211026
  9. ROCALTROL [Suspect]
     Active Substance: CALCITRIOL
     Indication: Osteoporosis prophylaxis
     Dosage: 1 DF, BID, IMMEDIATELY AFTER BREAKFAST AND DINNER
     Dates: start: 20211026, end: 20220215
  10. LOXOPROFEN SODIUM [Suspect]
     Active Substance: LOXOPROFEN SODIUM
     Indication: Post herpetic neuralgia
     Dosage: 60 MG, QD, IMMEDIATELY AFTER BREAKFAST
     Dates: start: 20211026, end: 20211214
  11. REBAMIPIDE [Suspect]
     Active Substance: REBAMIPIDE
     Indication: Prophylaxis against gastrointestinal ulcer
     Dosage: 100 MG, QD, IMMEDIATELY AFTER BREAKFAST
     Dates: start: 20211026, end: 20211214
  12. PREDONINE [Suspect]
     Active Substance: PREDNISOLONE
     Indication: Systemic lupus erythematosus
     Dosage: 5 MG, QD, IMMEDIATELY AFTER BREAKFAST
     Dates: start: 20211026
  13. PL [Suspect]
     Active Substance: ACETAMINOPHEN\CAFFEINE\PROMETHAZINE\SALICYLAMIDE
     Indication: Nasopharyngitis
     Dosage: 1 G, QD, IMMEDIATELY AFTER BREAKFAST, LUNCH, AND DINNER
     Dates: start: 20211026, end: 20211109
  14. DEXTROMETHORPHAN HYDROBROMIDE [Suspect]
     Active Substance: DEXTROMETHORPHAN HYDROBROMIDE
     Indication: Cough
     Dosage: 15 MG, TID, IMMEDIATELY AFTER BREAKFAST, LUNCH, AND DINNER
     Dates: start: 20211026, end: 20220315
  15. TRANEXAMIC ACID [Suspect]
     Active Substance: TRANEXAMIC ACID
     Indication: Genital haemorrhage
     Dosage: 1500 MG, QD, IMMEDIATELY AFTER BREAKFAST
     Dates: start: 20220122, end: 20220126
  16. ASPIRIN [Suspect]
     Active Substance: ASPIRIN
     Indication: Prophylaxis
     Dosage: 100 MG, QD, BEFORE BEDTIME
     Dates: start: 20220215

REACTIONS (1)
  - Exposure during pregnancy [Unknown]
